FAERS Safety Report 10217452 (Version 1)
Quarter: 2014Q2

REPORT INFORMATION
  Report Type: Spontaneous
  Country: US (occurrence: US)
  Receive Date: 20140604
  Receipt Date: 20140604
  Transmission Date: 20141212
  Serious: Yes (Other)
  Sender: FDA-Public Use
  Company Number: US-TEVA-486354USA

PATIENT
  Age: 22 Year
  Sex: Female
  Weight: 77.18 kg

DRUGS (2)
  1. PLAN B ONE-STEP [Suspect]
     Indication: POST COITAL CONTRACEPTION
     Dosage: 1.5 MILLIGRAM DAILY;
     Route: 048
     Dates: start: 20140523, end: 20140523
  2. SULFAMETH/TRIMETHOPRIM [Concomitant]
     Indication: ARTHROPOD BITE
     Route: 048
     Dates: start: 20140520, end: 20140529

REACTIONS (2)
  - Pregnancy after post coital contraception [Unknown]
  - Maternal exposure before pregnancy [Unknown]
